FAERS Safety Report 15804033 (Version 1)
Quarter: 2019Q1

REPORT INFORMATION
  Report Type: Spontaneous
  Country: US (occurrence: US)
  Receive Date: 20190109
  Receipt Date: 20190109
  Transmission Date: 20190417
  Serious: Yes (Death, Hospitalization)
  Sender: FDA-Public Use
  Company Number: US-PFIZER INC-2019008460

PATIENT
  Age: 36 Year
  Sex: Male

DRUGS (1)
  1. CALCIUM CHLORIDE. [Suspect]
     Active Substance: CALCIUM CHLORIDE
     Dosage: UNK (INHALATION/NASAL)
     Route: 045

REACTIONS (5)
  - Environmental exposure [Fatal]
  - Pneumonia [Fatal]
  - Hypotension [Fatal]
  - Liver function test increased [Fatal]
  - Acute respiratory distress syndrome [Fatal]

NARRATIVE: CASE EVENT DATE: 2017
